FAERS Safety Report 8722733 (Version 2)
Quarter: 2015Q2

REPORT INFORMATION
  Report Type: Report from Study
  Country: US (occurrence: US)
  Receive Date: 20120814
  Receipt Date: 20150406
  Transmission Date: 20150821
  Serious: Yes (Other)
  Sender: FDA-Public Use
  Company Number: US-ROCHE-1100917

PATIENT
  Sex: Male

DRUGS (8)
  1. ACTIVASE [Suspect]
     Active Substance: ALTEPLASE
     Indication: ACUTE MYOCARDIAL INFARCTION
     Route: 042
     Dates: start: 19950913
  2. ZESTRIL [Concomitant]
     Active Substance: LISINOPRIL
     Route: 048
  3. DARVOCET-N 100 [Concomitant]
     Active Substance: ACETAMINOPHEN\PROPOXYPHENE NAPSYLATE
     Route: 065
  4. DOCUSATE CA [Concomitant]
     Route: 065
  5. NITROGLYCERIN DRIP [Concomitant]
     Route: 042
  6. ECOTRIN [Concomitant]
     Active Substance: ASPIRIN
     Route: 048
  7. NITRO-DUR [Concomitant]
     Active Substance: NITROGLYCERIN
     Dosage: ONE AT 8 AM AND 10 PM
     Route: 062
  8. NITROGLYCERIN SUBLINGUAL [Concomitant]

REACTIONS (4)
  - Activated partial thromboplastin time shortened [Unknown]
  - Blood pressure increased [Unknown]
  - Ventricular tachycardia [Unknown]
  - Arrhythmia [Unknown]
